FAERS Safety Report 10196688 (Version 1)
Quarter: 2014Q2

REPORT INFORMATION
  Report Type: Spontaneous
  Country: US (occurrence: None)
  Receive Date: 20140522
  Receipt Date: 20140522
  Transmission Date: 20141212
  Serious: Yes (Other)
  Sender: FDA-Public Use
  Company Number: 001741303A

PATIENT
  Age: 63 Year
  Sex: Female

DRUGS (5)
  1. MEANINGFUL BEAUTY ANTIOXIDANT DAY CREME WITH SPF 20 [Suspect]
     Dosage: ONCE DAILY DERMAL
     Dates: start: 20140122
  2. MEANINGFUL BEAUTY BRIGHTENING DECOLLETE AND NECK TREATMENT WITH SPF 15 [Suspect]
     Dosage: ONCE DAILY DERMAL
     Dates: start: 20140122
  3. ASPIRIN [Concomitant]
  4. VITAMINS [Concomitant]
  5. ASTHMA MEDICATIONS [Concomitant]

REACTIONS (2)
  - Erythema [None]
  - Application site pruritus [None]
